FAERS Safety Report 6255647-7 (Version None)
Quarter: 2009Q3

REPORT INFORMATION
  Report Type: 
  Country: None (occurrence: None)
  Receive Date: 20090701
  Receipt Date: 20090626
  Transmission Date: 20100115
  Serious: Yes (Hospitalization)
  Sender: FDA-Public Use
  Company Number: 2009006951

PATIENT
  Age: 74 Year
  Sex: Male
  Weight: 86.3 kg

DRUGS (10)
  1. TREANDA [Suspect]
     Indication: MANTLE CELL LYMPHOMA
     Dosage: (180 MG), INTRAVENOUS
     Route: 042
     Dates: start: 20090528
  2. VELCADE [Suspect]
     Indication: MANTLE CELL LYMPHOMA
     Dosage: (3.2 MG), INTRAVENOUS, (1.3 MG), INTRAVENOUS
     Route: 042
     Dates: start: 20090528, end: 20090610
  3. VELCADE [Suspect]
     Indication: MANTLE CELL LYMPHOMA
     Dosage: (3.2 MG), INTRAVENOUS, (1.3 MG), INTRAVENOUS
     Route: 042
     Dates: start: 20090617
  4. RITUXAN [Concomitant]
  5. ACYCLOVIR [Concomitant]
  6. BUSPIRONE HCL [Concomitant]
  7. LEXAPRO [Concomitant]
  8. ONDANSETRON HCL [Concomitant]
  9. SULFAMETHOXAZOLE [Concomitant]
  10. ZOLPIDEM [Concomitant]

REACTIONS (4)
  - BACK PAIN [None]
  - DIARRHOEA [None]
  - PYREXIA [None]
  - SMALL INTESTINAL OBSTRUCTION [None]
